FAERS Safety Report 8504893-8 (Version None)
Quarter: 2012Q3

REPORT INFORMATION
  Report Type: 
  Country: None (occurrence: None)
  Receive Date: 20120712
  Receipt Date: 20120709
  Transmission Date: 20120928
  Serious: Yes (Death)
  Sender: FDA-Public Use
  Company Number: PHHY2012CA059269

PATIENT
  Sex: Male

DRUGS (2)
  1. SANDOSTATIN LAR [Suspect]
     Indication: INTESTINAL OBSTRUCTION
     Dosage: 40 MG, EVERY 4 WEEKS
     Route: 030
     Dates: start: 20111118, end: 20120608
  2. SANDOSTATIN LAR [Suspect]
     Indication: METASTATIC GASTRIC CANCER

REACTIONS (1)
  - DEATH [None]
